FAERS Safety Report 18466093 (Version 1)
Quarter: 2020Q4

REPORT INFORMATION
  Report Type: Spontaneous
  Country: US (occurrence: US)
  Receive Date: 20201104
  Receipt Date: 20201104
  Transmission Date: 20210114
  Serious: Yes (Other)
  Sender: FDA-Public Use
  Company Number: US-NAPPMUNDI-USA-2020-0155754

PATIENT
  Sex: Male

DRUGS (1)
  1. OXYCONTIN [Suspect]
     Active Substance: OXYCODONE HYDROCHLORIDE
     Indication: LIMB INJURY
     Route: 048

REACTIONS (9)
  - Nerve injury [Unknown]
  - Drug dependence [Unknown]
  - Learning disability [Unknown]
  - Cardiac disorder [Unknown]
  - Depression [Unknown]
  - Asthma [Unknown]
  - Attention deficit hyperactivity disorder [Unknown]
  - Hypertension [Unknown]
  - Pain [Unknown]
